FAERS Safety Report 7542637-7 (Version None)
Quarter: 2011Q2

REPORT INFORMATION
  Report Type: 
  Country: None (occurrence: None)
  Receive Date: 20110613
  Receipt Date: 20110525
  Transmission Date: 20111010
  Serious: No
  Sender: FDA-Public Use
  Company Number: US-B.I. PHARMACEUTICALS,INC./RIDGEFIELD-2011-BP-14048BP

PATIENT
  Age: 86 Year
  Sex: Female
  Weight: 44.45 kg

DRUGS (1)
  1. PRADAXA [Suspect]
     Dosage: 300 MG
     Dates: start: 20110301

REACTIONS (3)
  - HAEMATURIA [None]
  - CREATININE RENAL CLEARANCE DECREASED [None]
  - WEIGHT DECREASED [None]
